FAERS Safety Report 4809668-9 (Version None)
Quarter: 2005Q4

REPORT INFORMATION
  Report Type: 
  Country: None (occurrence: None)
  Receive Date: 20051021
  Receipt Date: 20020913
  Transmission Date: 20060501
  Serious: No
  Sender: FDA-Public Use
  Company Number: USA020921212

PATIENT
  Sex: Male

DRUGS (1)
  1. ZYPREXA [Suspect]
     Indication: POST-TRAUMATIC STRESS DISORDER
     Dosage: 12.5 MG/DAY

REACTIONS (5)
  - ASTHENIA [None]
  - DRY MOUTH [None]
  - FATIGUE [None]
  - THIRST [None]
  - WHITE BLOOD CELL COUNT DECREASED [None]
